FAERS Safety Report 8764112 (Version 1)
Quarter: 2012Q4

REPORT INFORMATION
  Report Type: 
  Country: US (occurrence: US)
  Receive Date: 20120831
  Receipt Date: 20120831
  Transmission Date: 20130627
  Serious: No
  Sender: FDA-Public Use
  Company Number: US-BAYER-2012-089684

PATIENT

DRUGS (6)
  1. ALEVE CAPLET/TABLET,MIDOL EXTENDED RELIEF CAPLET [Suspect]
     Indication: HEADACHE
     Dosage: 3 DF, UNK
     Route: 048
  2. ALEVE CAPLET/TABLET,MIDOL EXTENDED RELIEF CAPLET [Suspect]
     Indication: MUSCLE SPASMS
  3. ADVIL [Concomitant]
     Dosage: 2 DF, UNK
  4. TYLENOL [Concomitant]
     Dosage: 3 DF, UNK
  5. T3 [Concomitant]
     Dosage: 1 DF, UNK
  6. PAMPRIN [Concomitant]
     Dosage: 1 DF, UNK

REACTIONS (2)
  - Headache [None]
  - Muscle spasms [None]
